FAERS Safety Report 10096073 (Version 1)
Quarter: 2014Q2

REPORT INFORMATION
  Report Type: Report from Study
  Country: CA (occurrence: CA)
  Receive Date: 20140422
  Receipt Date: 20140422
  Transmission Date: 20141212
  Serious: Yes (Hospitalization)
  Sender: FDA-Public Use
  Company Number: CA-JNJFOC-20140409716

PATIENT
  Age: 21 Year
  Sex: Female

DRUGS (4)
  1. STELARA [Suspect]
     Indication: CROHN^S DISEASE
     Route: 058
  2. METHOTREXATE [Concomitant]
     Route: 065
  3. FOLIC ACID [Concomitant]
     Route: 065
  4. VITAMINS NOS [Concomitant]
     Route: 065

REACTIONS (1)
  - Anal abscess [Unknown]
